FAERS Safety Report 8241975-2 (Version None)
Quarter: 2012Q1

REPORT INFORMATION
  Report Type: 
  Country: None (occurrence: None)
  Receive Date: 20120329
  Receipt Date: 20120319
  Transmission Date: 20120608
  Serious: Yes (Hospitalization)
  Sender: FDA-Public Use
  Company Number: US-BIOGENIDEC-2012BI009217

PATIENT
  Age: 49 Year
  Sex: Male
  Weight: 65 kg

DRUGS (55)
  1. NORCO [Concomitant]
     Indication: PAIN
     Route: 048
  2. MORPHINE [Concomitant]
     Indication: HEADACHE
     Route: 042
  3. ONDANSETRON [Concomitant]
     Route: 042
  4. TEGRETOL [Concomitant]
     Indication: CONVULSION
     Route: 048
  5. PROMETHAZINE [Concomitant]
     Route: 048
  6. MIRTAZAPINE [Concomitant]
     Route: 048
  7. ZOLPIDEM [Concomitant]
     Route: 048
  8. NORCO [Concomitant]
     Route: 048
  9. PREGABALIN [Concomitant]
     Route: 048
  10. TIZANIDINE HCL [Concomitant]
     Route: 048
  11. COQ10 [Concomitant]
     Route: 048
  12. NICODERM CQ [Concomitant]
     Route: 062
  13. NALOXONE [Concomitant]
  14. METHYLPHENIDATE [Concomitant]
     Route: 048
  15. MAGNESIUM HYDROXIDE TAB [Concomitant]
     Route: 048
  16. TAMSULOSIN HCL [Concomitant]
     Indication: URINARY RETENTION
     Route: 048
  17. ENOXAPARIN [Concomitant]
     Indication: THROMBOSIS PROPHYLAXIS
     Route: 058
  18. POTASSIUM CHLORIDE [Concomitant]
     Indication: ELECTROLYTE SUBSTITUTION THERAPY
     Route: 048
  19. NORCO [Concomitant]
     Indication: HEADACHE
     Route: 048
  20. TRIMETHOBENZAMIDE HCL [Concomitant]
     Route: 030
  21. MORPHINE [Concomitant]
     Indication: FACIAL PAIN
     Route: 042
  22. MORPHINE [Concomitant]
     Indication: PAIN
     Route: 042
  23. LIDOCAINE 1% [Concomitant]
  24. BACLOFEN [Concomitant]
     Indication: MUSCLE SPASTICITY
     Route: 048
  25. GLUTOSE [Concomitant]
     Route: 048
  26. FAMOTIDINE [Concomitant]
     Route: 048
  27. FAMOTIDINE [Concomitant]
     Route: 042
  28. SODIUM CHLORIDE [Concomitant]
     Route: 042
  29. AMANTADINE HCL [Concomitant]
     Route: 048
  30. GINSENG [Concomitant]
     Route: 048
  31. IBUPROFEN [Concomitant]
     Indication: PAIN
     Route: 048
  32. MAGNESIUM ASPARTATE [Concomitant]
     Route: 048
  33. VITAMIN B COMPLEX CAP [Concomitant]
     Route: 048
  34. SUDAFED 12 HOUR [Concomitant]
     Indication: GENERAL SYMPTOM
     Route: 048
  35. FENTANYL [Concomitant]
     Indication: PAIN
     Route: 042
  36. TORADOL [Concomitant]
     Dates: start: 20120301
  37. NORCO [Concomitant]
     Route: 048
  38. POLYETHYLENE GLYCOL [Concomitant]
     Route: 048
  39. FISH OIL [Concomitant]
  40. TYSABRI [Suspect]
     Indication: MULTIPLE SCLEROSIS
     Route: 042
     Dates: start: 20080408, end: 20120221
  41. BISACODYL [Concomitant]
     Route: 054
  42. ONDANSETRON [Concomitant]
     Route: 048
  43. AMLODIPINE [Concomitant]
     Indication: HYPERTENSION
     Route: 048
  44. HYDRALAZINE HCL [Concomitant]
     Route: 042
  45. SODIUM CHLORIDE [Concomitant]
     Route: 045
  46. DIPHENHYDRAMINE HCL [Concomitant]
     Indication: HYPERSENSITIVITY
     Route: 042
  47. SERTRALINE HYDROCHLORIDE [Concomitant]
     Route: 048
  48. BACLOFEN [Concomitant]
     Indication: PAIN
     Route: 048
  49. DEXTROSE 50% [Concomitant]
     Route: 042
  50. DOCUSATE SODIUM [Concomitant]
     Route: 048
  51. ACETAMINOPHEN [Concomitant]
  52. GINKOBA BILOBA [Concomitant]
     Route: 048
  53. METOCLOPRAMIDE [Concomitant]
     Route: 048
  54. CALCIUM CARBONATE [Concomitant]
     Route: 048
  55. MULTI-VITAMIN [Concomitant]
     Route: 048

REACTIONS (3)
  - SINUSITIS [None]
  - MENINGITIS CRYPTOCOCCAL [None]
  - CRYPTOCOCCAL FUNGAEMIA [None]
